FAERS Safety Report 6434624-7 (Version None)
Quarter: 2009Q4

REPORT INFORMATION
  Report Type: 
  Country: None (occurrence: None)
  Receive Date: 20091110
  Receipt Date: 20091104
  Transmission Date: 20100525
  Serious: Yes (Hospitalization)
  Sender: FDA-Public Use
  Company Number: B0601774A

PATIENT
  Age: 75 Year
  Sex: Male
  Weight: 69 kg

DRUGS (6)
  1. ARIXTRA [Suspect]
     Indication: ATRIAL FIBRILLATION
     Dosage: 7.5MG PER DAY
     Route: 058
     Dates: start: 20090301, end: 20090709
  2. SPIRONOLACTONE [Concomitant]
     Route: 065
  3. FUMAFER [Concomitant]
     Route: 065
  4. CACIT VITAMINE D3 [Concomitant]
     Route: 065
  5. LACTULOSE [Concomitant]
     Route: 065
  6. SYMBICORT [Concomitant]
     Route: 065

REACTIONS (6)
  - ANAEMIA [None]
  - CREATININE RENAL CLEARANCE DECREASED [None]
  - HAEMATOMA [None]
  - HAEMOGLOBIN DECREASED [None]
  - INCORRECT DRUG ADMINISTRATION DURATION [None]
  - OFF LABEL USE [None]
